FAERS Safety Report 9067532 (Version 1)
Quarter: 2013Q1

REPORT INFORMATION
  Report Type: Report from Study
  Country: US (occurrence: US)
  Receive Date: 20130131
  Receipt Date: 20130131
  Transmission Date: 20140127
  Serious: Yes (Other)
  Sender: FDA-Public Use
  Company Number: US-ABBOTT-12P-163-1007911-00

PATIENT
  Sex: Female

DRUGS (1)
  1. HUMIRA PEN [Suspect]
     Indication: RHEUMATOID ARTHRITIS
     Dates: start: 20101201, end: 201211

REACTIONS (1)
  - Lung neoplasm malignant [Not Recovered/Not Resolved]
